FAERS Safety Report 8811735 (Version 1)
Quarter: 2012Q4

REPORT INFORMATION
  Report Type: Spontaneous
  Country: US (occurrence: None)
  Receive Date: 20120925
  Receipt Date: 20120925
  Transmission Date: 20130627
  Serious: Yes (Hospitalization)
  Sender: FDA-Public Use
  Company Number: None

PATIENT
  Age: 49 Year
  Sex: Female
  Weight: 114.3 kg

DRUGS (11)
  1. WARFARIN [Suspect]
     Indication: VENOUS THROMBOEMBOLISM
     Dosage: 7.5 mg -M-H-, 10 mg -F-S- Daily po
     Dates: start: 2010, end: 20120515
  2. RANITIDINE [Concomitant]
  3. PHENYTOIN ER [Concomitant]
  4. METFORMIN [Concomitant]
  5. IMODIUM A-D [Concomitant]
  6. HYDROCORTISONE [Concomitant]
  7. CYCLOBENZAPRINE [Concomitant]
  8. CRESTOR [Concomitant]
  9. CLOTRIMAZOLE [Concomitant]
  10. ATENOLOL [Concomitant]
  11. ANUSOL [Concomitant]

REACTIONS (3)
  - Skin necrosis [None]
  - Nausea [None]
  - Blister [None]
